FAERS Safety Report 8257612-7 (Version None)
Quarter: 2012Q2

REPORT INFORMATION
  Report Type: 
  Country: None (occurrence: None)
  Receive Date: 20120403
  Receipt Date: 20120329
  Transmission Date: 20120825
  Serious: Yes (Hospitalization)
  Sender: FDA-Public Use
  Company Number: IT-PFIZER INC-2012067841

PATIENT
  Age: 75 Year
  Sex: Female

DRUGS (2)
  1. SUTENT [Suspect]
     Indication: RENAL CANCER
     Dosage: 37.5 MG, 1X/DAY
     Route: 048
     Dates: start: 20100929, end: 20101010
  2. LEVOTHYROXINE SODIUM [Concomitant]
     Dosage: 75 UG, UNK
     Route: 048

REACTIONS (2)
  - ILEUS PARALYTIC [None]
  - ANAEMIA [None]
